FAERS Safety Report 5578524-3 (Version None)
Quarter: 2007Q4

REPORT INFORMATION
  Report Type: 
  Country: None (occurrence: None)
  Receive Date: 20071227
  Receipt Date: 20070511
  Transmission Date: 20080405
  Serious: Yes (Other)
  Sender: FDA-Public Use
  Company Number: 2006VX001637

PATIENT
  Age: 9 Year
  Sex: Male
  Weight: 26 kg

DRUGS (5)
  1. CESAMET [Suspect]
     Dosage: 0.50 MG; QD; PO
     Route: 048
  2. CHLORPROMAZINE [Suspect]
     Dosage: 10.00 MG; 6XD; IV
     Route: 042
  3. METHOTREXATE [Concomitant]
  4. CYTOSAR [Concomitant]
  5. PROLOPRIM [Concomitant]

REACTIONS (6)
  - AGITATION [None]
  - ANAPHYLACTIC REACTION [None]
  - CONFUSIONAL STATE [None]
  - COUGH [None]
  - CYANOSIS [None]
  - DYSPNOEA [None]
